FAERS Safety Report 8242642-1 (Version None)
Quarter: 2012Q1

REPORT INFORMATION
  Report Type: 
  Country: None (occurrence: None)
  Receive Date: 20120329
  Receipt Date: 20120307
  Transmission Date: 20120608
  Serious: No
  Sender: FDA-Public Use
  Company Number: US-BAYER-2012-023264

PATIENT
  Sex: Female

DRUGS (4)
  1. GEODON [Concomitant]
  2. WELLBUTRIN [Concomitant]
  3. DROSPIRENONE AND ETHINYL ESTRADIOL [Suspect]
     Route: 048
  4. LEVOTHYROXINE SODIUM [Concomitant]

REACTIONS (1)
  - TARDIVE DYSKINESIA [None]
